FAERS Safety Report 15313669 (Version 8)
Quarter: 2019Q1

REPORT INFORMATION
  Report Type: Report from Study
  Country: IE (occurrence: IE)
  Receive Date: 20180824
  Receipt Date: 20190329
  Transmission Date: 20190417
  Serious: Yes (Hospitalization, Other)
  Sender: FDA-Public Use
  Company Number: IE-BRISTOL-MYERS SQUIBB COMPANY-BMS-2018-060774

PATIENT
  Age: 66 Year
  Sex: Male

DRUGS (2)
  1. NIVOLUMAB [Suspect]
     Active Substance: NIVOLUMAB
     Indication: MALIGNANT MELANOMA
     Dosage: UNK
     Route: 050
     Dates: start: 20180619
  2. IPILIMUMAB [Suspect]
     Active Substance: IPILIMUMAB
     Indication: MALIGNANT MELANOMA
     Dosage: UNK
     Route: 050
     Dates: start: 20180619

REACTIONS (9)
  - Neuropathy peripheral [Recovering/Resolving]
  - Sepsis [Recovered/Resolved]
  - Body temperature increased [Recovering/Resolving]
  - Decreased appetite [Not Recovered/Not Resolved]
  - Rash [Unknown]
  - Oedema peripheral [Recovering/Resolving]
  - Guillain-Barre syndrome [Recovering/Resolving]
  - Hepatitis [Recovering/Resolving]
  - Fatigue [Not Recovered/Not Resolved]

NARRATIVE: CASE EVENT DATE: 20180620
